FAERS Safety Report 19921060 (Version 2)
Quarter: 2021Q4

REPORT INFORMATION
  Report Type: Report from Study
  Country: BE (occurrence: BE)
  Receive Date: 20211006
  Receipt Date: 20211019
  Transmission Date: 20220303
  Serious: Yes (Hospitalization, Other)
  Sender: FDA-Public Use
  Company Number: BE-BRISTOL-MYERS SQUIBB COMPANY-BMS-2021-021965

PATIENT
  Age: 70 Year
  Sex: Male
  Weight: 58 kg

DRUGS (22)
  1. NIVOLUMAB [Suspect]
     Active Substance: NIVOLUMAB
     Indication: Non-small cell lung cancer
     Dosage: 360 MILLIGRAM
     Route: 042
     Dates: start: 20210222
  2. CISPLATIN [Suspect]
     Active Substance: CISPLATIN
     Indication: Non-small cell lung cancer
     Dosage: 128.25 MILLIGRAM
     Route: 065
     Dates: start: 20210222
  3. PEMETREXED DISODIUM [Suspect]
     Active Substance: PEMETREXED DISODIUM
     Indication: Non-small cell lung cancer
     Dosage: 855 MILLIGRAM
     Route: 065
     Dates: start: 20210222
  4. DEXAMETHASONE [Concomitant]
     Active Substance: DEXAMETHASONE
     Indication: Product used for unknown indication
     Dosage: 10 MILLIGRAM
     Route: 042
     Dates: start: 20210222, end: 20210222
  5. AKYNZEO [Concomitant]
     Active Substance: NETUPITANT\PALONOSETRON HYDROCHLORIDE
     Indication: Product used for unknown indication
     Dosage: 300 MILLIGRAM
     Route: 048
     Dates: start: 20210222, end: 20210222
  6. FUROSEMIDE [Concomitant]
     Active Substance: FUROSEMIDE
     Indication: Product used for unknown indication
     Dosage: 20 MILLIGRAM
     Route: 042
     Dates: start: 20210222, end: 20210222
  7. MANNITOL [Concomitant]
     Active Substance: MANNITOL
     Indication: Product used for unknown indication
     Dosage: 50 MILLILITER
     Route: 065
  8. MANNITOL [Concomitant]
     Active Substance: MANNITOL
     Dosage: 7.5 GRAM
     Route: 042
     Dates: start: 20210222, end: 20210222
  9. VITAMIN B12 [Concomitant]
     Active Substance: CYANOCOBALAMIN
     Indication: Prophylaxis
     Dosage: 1 MILLIGRAM, QMO
     Route: 042
     Dates: start: 20210208
  10. MEDROL [Concomitant]
     Active Substance: METHYLPREDNISOLONE
     Indication: Prophylaxis
     Dosage: 24 MILLIGRAM, Q12H
     Route: 048
     Dates: start: 20210221, end: 20210223
  11. ACETAMINOPHEN [Concomitant]
     Active Substance: ACETAMINOPHEN
     Indication: Product used for unknown indication
     Dosage: 1 GRAM, Q8H
     Route: 048
     Dates: start: 202012
  12. TRAMADOL HYDROCHLORIDE [Concomitant]
     Active Substance: TRAMADOL HYDROCHLORIDE
     Indication: Product used for unknown indication
     Dosage: 50 MILLIGRAM, AS NEEDED
     Route: 048
     Dates: start: 202012
  13. MOTILIUM [Concomitant]
     Active Substance: DOMPERIDONE
     Indication: Product used for unknown indication
     Dosage: 10 MILLIGRAM, AS NEEDED
     Route: 048
     Dates: start: 202102, end: 20210215
  14. MOVICOL [Concomitant]
     Active Substance: POLYETHYLENE GLYCOL 3350\POTASSIUM CHLORIDE\SODIUM BICARBONATE\SODIUM CHLORIDE
     Indication: Prophylaxis
     Dosage: 13.8 MILLIGRAM, AS NEEDED
     Route: 048
     Dates: start: 20210215
  15. MOMETASONE [Concomitant]
     Active Substance: MOMETASONE
     Indication: Prophylaxis
     Dosage: 1 DOSAGE FORM= 2 UNITS NOS, AS NEEDED
     Route: 055
     Dates: start: 1998
  16. MAXIDEX [Concomitant]
     Active Substance: DEXAMETHASONE
     Indication: Prophylaxis
     Dosage: 1 DOSAGE FORM= 0.1 UNITS NOS, AS NEEDED
     Route: 001
     Dates: start: 1998
  17. DEXERYL [CHLORPHENAMINE MALEATE;DEXTROMETHORPHAN HYDROBROMIDE;GUAIFENE [Concomitant]
     Indication: Prophylaxis
     Dosage: 1 DOSAGE FORM= 1 UNITS NOS, QD
     Route: 061
     Dates: start: 2020
  18. FOLIC ACID [Concomitant]
     Active Substance: FOLIC ACID
     Indication: Prophylaxis
     Dosage: 0.4 MILLIGRAM, QD
     Route: 048
     Dates: start: 20210208
  19. LITICAN [ALIZAPRIDE] [Concomitant]
     Indication: Prophylaxis
     Dosage: 50 MILLIGRAM, AS NEEDED
     Route: 048
     Dates: start: 20210215, end: 20210301
  20. LORAZEPAM [Concomitant]
     Active Substance: LORAZEPAM
     Indication: Product used for unknown indication
     Dosage: 1 MILLIGRAM, QD
     Route: 048
     Dates: start: 20210208
  21. BUDESONIDE [Concomitant]
     Active Substance: BUDESONIDE
     Indication: Prophylaxis
     Dosage: 0.5 MILLIGRAM, QD
     Route: 055
     Dates: start: 1998
  22. ALBUTEROL SULFATE [Concomitant]
     Active Substance: ALBUTEROL SULFATE
     Indication: Product used for unknown indication
     Dosage: 1000 MICROGRAM, AS NEEDED
     Route: 055
     Dates: start: 20200831

REACTIONS (3)
  - Lymphocyte count decreased [Recovered/Resolved]
  - Anaemia [Recovered/Resolved]
  - General physical health deterioration [Recovered/Resolved]

NARRATIVE: CASE EVENT DATE: 20210301
